FAERS Safety Report 24075372 (Version 6)
Quarter: 2024Q4

REPORT INFORMATION
  Report Type: Report from Study
  Country: US (occurrence: US)
  Receive Date: 20240710
  Receipt Date: 20241224
  Transmission Date: 20250115
  Serious: Yes (Other)
  Sender: DECIPHERA PHARMACEUTICALS
  Company Number: US-DECIPHERA PHARMACEUTICALS LLC-2024US000590

PATIENT
  Age: 75 Year
  Sex: Male

DRUGS (2)
  1. QINLOCK [Suspect]
     Active Substance: RIPRETINIB
     Indication: Gastrointestinal stromal tumour
     Dosage: 150 MILLIGRAM, QD
     Route: 048
     Dates: start: 20240607, end: 2024
  2. CABOMETYX [Suspect]
     Active Substance: CABOZANTINIB S-MALATE
     Indication: Gastrointestinal stromal tumour
     Dosage: 40 MILLIGRAM, QD
     Route: 048
     Dates: start: 20240830, end: 2024

REACTIONS (11)
  - Intestinal obstruction [Unknown]
  - Pericardial effusion [Unknown]
  - Retching [Unknown]
  - Dysuria [Unknown]
  - Anxiety [Unknown]
  - Insomnia [Unknown]
  - Constipation [Unknown]
  - Weight decreased [Unknown]
  - Dyspnoea [Unknown]
  - Drug ineffective [Unknown]
  - Product dose omission issue [Unknown]

NARRATIVE: CASE EVENT DATE: 20240101
